FAERS Safety Report 6296832-8 (Version None)
Quarter: 2009Q3

REPORT INFORMATION
  Report Type: 
  Country: None (occurrence: None)
  Receive Date: 20090804
  Receipt Date: 20090724
  Transmission Date: 20100115
  Serious: Yes (Other)
  Sender: FDA-Public Use
  Company Number: PHHY2009AU31030

PATIENT
  Age: 63 Year
  Sex: Female

DRUGS (1)
  1. ACLASTA [Suspect]

REACTIONS (4)
  - HYPOCALCAEMIA [None]
  - INFLUENZA LIKE ILLNESS [None]
  - NAUSEA [None]
  - SYNCOPE [None]
